FAERS Safety Report 7949765-2 (Version None)
Quarter: 2011Q4

REPORT INFORMATION
  Report Type: 
  Country: None (occurrence: None)
  Receive Date: 20111130
  Receipt Date: 20111122
  Transmission Date: 20120403
  Serious: Yes (Other)
  Sender: FDA-Public Use
  Company Number: PHHY2011AU098893

PATIENT
  Sex: Male

DRUGS (3)
  1. LIPITOR [Concomitant]
     Dosage: UNK UKN, UNK
  2. PERINDOPRIL ERBUMINE [Concomitant]
     Dosage: UNK UKN, UNK
  3. GILENYA [Suspect]
     Indication: MULTIPLE SCLEROSIS
     Dosage: 0.5 MG/ DAY
     Route: 048
     Dates: start: 20111012, end: 20111021

REACTIONS (3)
  - LETHARGY [None]
  - FATIGUE [None]
  - DYSPNOEA [None]
